FAERS Safety Report 14447333 (Version 2)
Quarter: 2018Q1

REPORT INFORMATION
  Report Type: Spontaneous
  Country: US (occurrence: US)
  Receive Date: 20180126
  Receipt Date: 20180213
  Transmission Date: 20180509
  Serious: Yes (Other)
  Sender: FDA-Public Use
  Company Number: US-AKORN PHARMACEUTICALS-2018AKN00069

PATIENT
  Sex: Male
  Weight: 56.69 kg

DRUGS (2)
  1. MYORISAN [Suspect]
     Active Substance: ISOTRETINOIN
     Indication: ACNE
     Dosage: 40 MG, 2X/DAY
     Route: 048
     Dates: start: 20170928, end: 20171228
  2. MYORISAN [Suspect]
     Active Substance: ISOTRETINOIN
     Indication: ACNE
     Dosage: 20 MG, 2X/DAY
     Route: 048
     Dates: start: 20171205, end: 20171228

REACTIONS (3)
  - Aggression [Recovering/Resolving]
  - Mood altered [Not Recovered/Not Resolved]
  - Anger [Recovering/Resolving]

NARRATIVE: CASE EVENT DATE: 2017
